FAERS Safety Report 21891607 (Version 1)
Quarter: 2023Q1

REPORT INFORMATION
  Report Type: Spontaneous
  Country: US (occurrence: None)
  Receive Date: 20230120
  Receipt Date: 20230120
  Transmission Date: 20230417
  Serious: Yes (unspecified)
  Sender: FDA-Public Use
  Company Number: None

PATIENT
  Sex: 0

DRUGS (1)
  1. CAFFEINE AND SODIUM BENZOATE [Suspect]
     Active Substance: CAFFEINE\SODIUM BENZOATE
     Indication: Headache
     Dosage: FREQUENCY : ONCE;?
     Route: 040
     Dates: start: 20230115, end: 20230115

REACTIONS (2)
  - Product label issue [None]
  - Product use complaint [None]

NARRATIVE: CASE EVENT DATE: 20230115
